FAERS Safety Report 16026782 (Version 3)
Quarter: 2019Q1

REPORT INFORMATION
  Report Type: Report from Study
  Country: CL (occurrence: CL)
  Receive Date: 20190303
  Receipt Date: 20190326
  Transmission Date: 20190418
  Serious: Yes (Hospitalization)
  Sender: FDA-Public Use
  Company Number: PHHY2019CL045143

PATIENT
  Sex: Male
  Weight: 23 kg

DRUGS (1)
  1. OMNITROPE [Suspect]
     Active Substance: SOMATROPIN
     Indication: NEPHROPATHY
     Dosage: 10 MG, QD, (3IU - 10 MG)
     Route: 058
     Dates: start: 20181205

REACTIONS (4)
  - Blood potassium increased [Unknown]
  - Gastric infection [Recovering/Resolving]
  - Bladder tamponade [Recovering/Resolving]
  - Blood creatinine increased [Unknown]
